FAERS Safety Report 6375440-4 (Version None)
Quarter: 2009Q3

REPORT INFORMATION
  Report Type: 
  Country: None (occurrence: None)
  Receive Date: 20090917
  Receipt Date: 20090917
  Transmission Date: 20100115
  Serious: Yes (Hospitalization)
  Sender: FDA-Public Use
  Company Number: None

PATIENT
  Sex: Female
  Weight: 54.6 kg

DRUGS (6)
  1. RITXUIMAB [Suspect]
     Indication: CHRONIC LYMPHOCYTIC LEUKAEMIA
     Dosage: 375 MG/M2 5 TIMES IV
     Route: 042
     Dates: start: 20090416, end: 20090609
  2. METHOTREXATE [Concomitant]
  3. FLUDARABINE [Concomitant]
  4. CYCLOPHOSPHAMIDE [Concomitant]
  5. NEUPOGEN [Concomitant]
  6. SIROLIMUS [Concomitant]

REACTIONS (6)
  - DRUG HYPERSENSITIVITY [None]
  - FATIGUE [None]
  - HYPOGAMMAGLOBULINAEMIA [None]
  - INFLUENZA [None]
  - NEUTROPHIL COUNT DECREASED [None]
  - PYREXIA [None]
